FAERS Safety Report 15885890 (Version 1)
Quarter: 2019Q1

REPORT INFORMATION
  Report Type: Spontaneous
  Country: CN (occurrence: CN)
  Receive Date: 20190129
  Receipt Date: 20190129
  Transmission Date: 20190417
  Serious: Yes (Hospitalization)
  Sender: FDA-Public Use
  Company Number: CN-PFIZER INC-2019036755

PATIENT
  Age: 101 Year
  Sex: Female

DRUGS (5)
  1. LYRICA [Suspect]
     Active Substance: PREGABALIN
     Indication: PAIN IN EXTREMITY
     Dosage: 75 MG, TWICE A DAY
     Route: 048
     Dates: start: 20190116
  2. BAYASPIRIN [Concomitant]
     Active Substance: ASPIRIN
     Dosage: UNK
  3. SHEXIANG BAOXIN PILL [Concomitant]
     Dosage: UNK
  4. PERINDOPRIL [Concomitant]
     Active Substance: PERINDOPRIL
     Indication: HYPERTENSION
     Dosage: UNK
  5. TRIMETAZIDINE [Concomitant]
     Active Substance: TRIMETAZIDINE
     Dosage: UNK

REACTIONS (10)
  - Cerebrovascular accident [Unknown]
  - Depressed level of consciousness [Unknown]
  - Hyperuricaemia [Unknown]
  - Bronchitis chronic [Unknown]
  - Coma [Unknown]
  - Chronic kidney disease [Unknown]
  - Coronary artery disease [Unknown]
  - Product use in unapproved indication [Unknown]
  - Emphysema [Unknown]
  - Hypertension [Unknown]

NARRATIVE: CASE EVENT DATE: 201901
